FAERS Safety Report 25609486 (Version 1)
Quarter: 2025Q3

REPORT INFORMATION
  Report Type: Report from Study
  Country: US (occurrence: US)
  Receive Date: 20250727
  Receipt Date: 20250727
  Transmission Date: 20251020
  Serious: Yes (Other)
  Sender: ALEXION PHARMACEUTICALS
  Company Number: US-AstraZeneca-CH-00916864A

PATIENT
  Sex: Female
  Weight: 74.8 kg

DRUGS (1)
  1. OLAPARIB [Suspect]
     Active Substance: OLAPARIB
     Indication: Breast cancer
     Dosage: 300 MILLIGRAM, BID

REACTIONS (10)
  - Feeling abnormal [Unknown]
  - Insomnia [Unknown]
  - Nausea [Unknown]
  - Fatigue [Unknown]
  - Brain fog [Unknown]
  - Depression [Unknown]
  - Joint stiffness [Unknown]
  - Carbohydrate antigen 125 increased [Unknown]
  - Memory impairment [Unknown]
  - Carcinoembryonic antigen increased [Unknown]
